FAERS Safety Report 7427765-9 (Version None)
Quarter: 2011Q2

REPORT INFORMATION
  Report Type: 
  Country: None (occurrence: None)
  Receive Date: 20110412
  Receipt Date: 20110404
  Transmission Date: 20111010
  Serious: No
  Sender: FDA-Public Use
  Company Number: 2011-00164

PATIENT
  Sex: Female

DRUGS (1)
  1. ZICAM COLD REMEDY ORAL MIST [Suspect]
     Dosage: ONE DOSE, ONE DOSE
     Dates: start: 20110404, end: 20110404

REACTIONS (1)
  - AGEUSIA [None]
